FAERS Safety Report 13071659 (Version 1)
Quarter: 2016Q4

REPORT INFORMATION
  Report Type: Spontaneous
  Country: CH (occurrence: CH)
  Receive Date: 20161229
  Receipt Date: 20161229
  Transmission Date: 20170207
  Serious: Yes (Other)
  Sender: FDA-Public Use
  Company Number: CH-PFIZER INC-2016581386

PATIENT
  Age: 67 Year
  Sex: Female

DRUGS (23)
  1. PROGRAF [Interacting]
     Active Substance: TACROLIMUS\TACROLIMUS ANHYDROUS
     Indication: LUNG TRANSPLANT
     Dosage: 2 MG, 2X/DAY
     Route: 048
  2. PROGRAF [Interacting]
     Active Substance: TACROLIMUS\TACROLIMUS ANHYDROUS
     Dosage: 1.5MG, 2X/DAY
     Route: 048
     Dates: start: 20161120, end: 20161122
  3. TAZOBAC [Concomitant]
     Active Substance: PIPERACILLIN SODIUM\TAZOBACTAM SODIUM
     Indication: EVIDENCE BASED TREATMENT
     Dosage: 4.5 MG, 1X/DAY
     Route: 041
     Dates: start: 20161119, end: 20161121
  4. SERETIDE [Concomitant]
     Active Substance: FLUTICASONE PROPIONATE\SALMETEROL XINAFOATE
     Dosage: 1DF, 2X/DAY (250MCG BY INHALATION )
     Route: 055
  5. ZITHROMAX [Concomitant]
     Active Substance: AZITHROMYCIN DIHYDRATE
     Dosage: 250 MG, DAILY
     Dates: end: 20161119
  6. VFEND [Suspect]
     Active Substance: VORICONAZOLE
     Indication: EVIDENCE BASED TREATMENT
     Dosage: 400 MG, 2X/DAY
     Route: 041
     Dates: start: 20161119
  7. TAZOBAC [Concomitant]
     Active Substance: PIPERACILLIN SODIUM\TAZOBACTAM SODIUM
     Dosage: 4.5 MG, 1X/DAY
     Route: 041
     Dates: start: 20161125, end: 20161201
  8. VALTREX [Concomitant]
     Active Substance: VALACYCLOVIR HYDROCHLORIDE
     Dosage: 500MG, 1X/DAY
     Route: 048
     Dates: start: 20161122
  9. CELLCEPT [Concomitant]
     Active Substance: MYCOPHENOLATE MOFETIL\MYCOPHENOLATE MOFETIL HYDROCHLORIDE
     Dosage: 1000 MG, 2X/DAY
  10. VALVERDE /02597501/ [Interacting]
     Active Substance: SENNOSIDE B
     Indication: CONSTIPATION
     Dosage: 15 ML, 1X/DAY
     Route: 048
     Dates: start: 20161127, end: 20161128
  11. VALTREX [Concomitant]
     Active Substance: VALACYCLOVIR HYDROCHLORIDE
     Dosage: 500 MG, 1X/DAY
     Route: 048
     Dates: end: 20161119
  12. BELOC-ZOK [Concomitant]
     Active Substance: METOPROLOL SUCCINATE
     Dosage: 75MG, 1X/DAY
  13. ESOMEPRAZOLE [Concomitant]
     Active Substance: ESOMEPRAZOLE
     Dosage: 40MG, 1X/DAY
     Dates: end: 20161121
  14. MAGNESIOCARD [Concomitant]
     Active Substance: MAGNESIUM ASPARTATE HYDROCHLORIDE
     Dosage: 5 MMOL, AS NEEDED
     Dates: end: 20161119
  15. PROGRAF [Interacting]
     Active Substance: TACROLIMUS\TACROLIMUS ANHYDROUS
     Dosage: 3 MG, 2X/DAY
     Route: 048
     Dates: start: 20161203
  16. PARAGOL [Interacting]
     Active Substance: MINERAL OIL\PHENOLPHTHALEIN
     Indication: CONSTIPATION
     Dosage: 5 ML, DAILY
     Route: 048
     Dates: start: 20161127, end: 20161128
  17. ASPIRIN CARDIO [Concomitant]
     Active Substance: ASPIRIN
     Dosage: 100 MG, 1X/DAY
  18. CRESTOR [Concomitant]
     Active Substance: ROSUVASTATIN CALCIUM
     Dosage: 10 MG, 1X/DAY
  19. VFEND [Interacting]
     Active Substance: VORICONAZOLE
     Dosage: 200 MG, 2X/DAY
     Route: 041
     Dates: end: 20161121
  20. PROGRAF [Interacting]
     Active Substance: TACROLIMUS\TACROLIMUS ANHYDROUS
     Dosage: 2 MG, 2X/DAY
     Route: 048
     Dates: start: 20161123, end: 20161202
  21. ONBREZ [Concomitant]
     Active Substance: INDACATEROL
     Dosage: 1DF,1X/DAY (0.3MCG BY INHALATION )
     Route: 055
  22. ENALAPRIL [Concomitant]
     Active Substance: ENALAPRIL
     Dosage: 20 MG, 1X/DAY
  23. FRAGMIN [Concomitant]
     Active Substance: DALTEPARIN SODIUM
     Dosage: 5000 IU, 1X/DAY
     Dates: start: 20161119, end: 20161202

REACTIONS (3)
  - Drug interaction [Recovered/Resolved]
  - Immunosuppressant drug level decreased [Recovered/Resolved]
  - Immunosuppressant drug level increased [Recovered/Resolved]

NARRATIVE: CASE EVENT DATE: 20161123
